FAERS Safety Report 16726473 (Version 6)
Quarter: 2020Q1

REPORT INFORMATION
  Report Type: Report from Study
  Country: US (occurrence: US)
  Receive Date: 20190821
  Receipt Date: 20200326
  Transmission Date: 20200409
  Serious: Yes (Hospitalization, Other)
  Sender: FDA-Public Use
  Company Number: US-ACTELION-A-US2019-194504

PATIENT
  Sex: Female
  Weight: 97.51 kg

DRUGS (4)
  1. ELIQUIS [Concomitant]
     Active Substance: APIXABAN
  2. STOOL SOFTENER (DOCUSATE) [Concomitant]
     Active Substance: DOCUSATE
     Indication: CONSTIPATION
  3. OPSUMIT [Suspect]
     Active Substance: MACITENTAN
     Indication: PULMONARY ARTERIAL HYPERTENSION
     Dosage: 10 MG, QD
     Route: 048
  4. ADEMPAS [Concomitant]
     Active Substance: RIOCIGUAT

REACTIONS (11)
  - Pulmonary embolism [Unknown]
  - Gastrooesophageal reflux disease [Unknown]
  - Angioplasty [Unknown]
  - Peripheral swelling [Unknown]
  - Hospitalisation [Unknown]
  - Dysmenorrhoea [Not Recovered/Not Resolved]
  - Decreased appetite [Unknown]
  - Pulmonary arterial pressure increased [Unknown]
  - Menstrual disorder [Not Recovered/Not Resolved]
  - Flatulence [Not Recovered/Not Resolved]
  - Constipation [Not Recovered/Not Resolved]
